FAERS Safety Report 19325017 (Version 8)
Quarter: 2021Q3

REPORT INFORMATION
  Report Type: Report from Study
  Country: BR (occurrence: BR)
  Receive Date: 20210528
  Receipt Date: 20210719
  Transmission Date: 20211014
  Serious: Yes (Death)
  Sender: FDA-Public Use
  Company Number: BR-EISAI MEDICAL RESEARCH-EC-2021-093576

PATIENT
  Age: 51 Year
  Sex: Male
  Weight: 97.3 kg

DRUGS (18)
  1. ESCITALOPRAM [Concomitant]
     Active Substance: ESCITALOPRAM OXALATE
     Dates: start: 202012
  2. LOPERAMIDE HYDROCHLORIDE. [Concomitant]
     Active Substance: LOPERAMIDE HYDROCHLORIDE
     Dates: start: 20210511, end: 20210513
  3. LEVOTHYROXINE SODIUM. [Concomitant]
     Active Substance: LEVOTHYROXINE SODIUM
     Dates: start: 202005
  4. DIAZEPAM. [Concomitant]
     Active Substance: DIAZEPAM
     Dates: start: 202012
  5. AMOXICILLIN;CLAVULANATE POTASSIUM [Concomitant]
     Active Substance: AMOXICILLIN\CLAVULANATE POTASSIUM
     Dates: start: 20210504, end: 20210510
  6. FLUCONAZOLE. [Concomitant]
     Active Substance: FLUCONAZOLE
     Dates: start: 20210517
  7. LENVATINIB [Suspect]
     Active Substance: LENVATINIB
     Indication: SQUAMOUS CELL CARCINOMA OF HEAD AND NECK
     Route: 048
     Dates: start: 20210510, end: 20210510
  8. MORPHINE [Concomitant]
     Active Substance: MORPHINE
     Dates: start: 20210516
  9. CIPROFLOXACIN. [Concomitant]
     Active Substance: CIPROFLOXACIN
     Dates: start: 20210517
  10. CALCIUM CARBONATE. [Concomitant]
     Active Substance: CALCIUM CARBONATE
     Dates: start: 20210504
  11. CALCIUM GLUCONATE. [Concomitant]
     Active Substance: CALCIUM GLUCONATE
     Dates: start: 20210510, end: 20210510
  12. CLOBETASOL PROPIONATE. [Concomitant]
     Active Substance: CLOBETASOL PROPIONATE
     Dates: start: 20210517
  13. NYSTATIN. [Concomitant]
     Active Substance: NYSTATIN
     Dates: start: 20210517
  14. METOCLOPRAMIDE. [Concomitant]
     Active Substance: METOCLOPRAMIDE
     Dates: start: 20210511
  15. LENVATINIB [Suspect]
     Active Substance: LENVATINIB
     Route: 048
     Dates: start: 20210521, end: 20210522
  16. PEMBROLIZUMAB. [Suspect]
     Active Substance: PEMBROLIZUMAB
     Indication: SQUAMOUS CELL CARCINOMA OF HEAD AND NECK
     Route: 041
     Dates: start: 20210510, end: 20210510
  17. TYLEX [CODEINE PHOSPHATE;PARACETAMOL] [Concomitant]
     Dates: start: 202004
  18. SODIUM CHLORIDE. [Concomitant]
     Active Substance: SODIUM CHLORIDE
     Dates: start: 20210517, end: 20210520

REACTIONS (1)
  - Upper gastrointestinal haemorrhage [Fatal]

NARRATIVE: CASE EVENT DATE: 20210523
